FAERS Safety Report 5403438-9 (Version None)
Quarter: 2007Q3

REPORT INFORMATION
  Report Type: 
  Country: None (occurrence: None)
  Receive Date: 20070713
  Receipt Date: 20070510
  Transmission Date: 20080115
  Serious: Yes (Hospitalization, Other)
  Sender: FDA-Public Use
  Company Number: US-JNJFOC-20061103461

PATIENT
  Age: 22 Year
  Sex: Female
  Weight: 73 kg

DRUGS (2)
  1. ORTHO EVRA [Suspect]
     Indication: CONTRACEPTION
     Dates: start: 20050101, end: 20050718
  2. MAXALT [Concomitant]

REACTIONS (2)
  - PHLEBITIS SUPERFICIAL [None]
  - PULMONARY EMBOLISM [None]
